FAERS Safety Report 24987632 (Version 1)
Quarter: 2025Q1

REPORT INFORMATION
  Report Type: Spontaneous
  Country: DE (occurrence: DE)
  Receive Date: 20250219
  Receipt Date: 20250219
  Transmission Date: 20250409
  Serious: Yes (Hospitalization, Other)
  Sender: SANOFI AVENTIS
  Company Number: None

PATIENT
  Age: 71 Year
  Sex: Female

DRUGS (19)
  1. MIRTAZAPINE [Suspect]
     Active Substance: MIRTAZAPINE
     Route: 048
     Dates: end: 20040301
  2. MIRTAZAPINE [Suspect]
     Active Substance: MIRTAZAPINE
     Dosage: 60 MG, QD
     Route: 048
     Dates: start: 20040302, end: 20040510
  3. MIRTAZAPINE [Suspect]
     Active Substance: MIRTAZAPINE
     Dosage: 4 MG, QD
     Route: 048
     Dates: start: 20040619, end: 20040704
  4. MIRTAZAPINE [Suspect]
     Active Substance: MIRTAZAPINE
     Dosage: 60 MG, QD
     Route: 048
     Dates: start: 20040705
  5. ATORVASTATIN CALCIUM [Suspect]
     Active Substance: ATORVASTATIN CALCIUM
     Dosage: 20 MG, QD
     Route: 048
  6. HYDROCHLOROTHIAZIDE\IRBESARTAN [Interacting]
     Active Substance: HYDROCHLOROTHIAZIDE\IRBESARTAN
     Dosage: 300 MG, QD
     Route: 048
  7. REBOXETINE MESYLATE [Suspect]
     Active Substance: REBOXETINE MESYLATE
     Route: 048
     Dates: end: 20040301
  8. REBOXETINE MESYLATE [Suspect]
     Active Substance: REBOXETINE MESYLATE
     Dosage: 14 MG, QD
     Route: 048
     Dates: start: 20040302, end: 20040510
  9. REBOXETINE MESYLATE [Suspect]
     Active Substance: REBOXETINE MESYLATE
     Dosage: 8 MG, QD
     Route: 048
     Dates: start: 20040514, end: 20040618
  10. REBOXETINE MESYLATE [Suspect]
     Active Substance: REBOXETINE MESYLATE
     Dosage: 60 MG, QD
     Route: 048
     Dates: start: 20040619, end: 20040621
  11. REBOXETINE MESYLATE [Suspect]
     Active Substance: REBOXETINE MESYLATE
     Dosage: 4 MG, QD
     Route: 048
     Dates: start: 20040622, end: 20040624
  12. MELPERONE HYDROCHLORIDE [Suspect]
     Active Substance: MELPERONE HYDROCHLORIDE
     Dosage: 100 MG, QD
     Route: 048
     Dates: start: 20040302
  13. DIGITOXIN [Concomitant]
     Active Substance: DIGITOXIN
     Dosage: 0.1 MG, QD
     Route: 048
  14. BISOPROLOL FUMARATE [Concomitant]
     Active Substance: BISOPROLOL FUMARATE
     Dosage: 15 MG, QD
     Route: 048
  15. FUROSEMIDE [Concomitant]
     Active Substance: FUROSEMIDE
     Dosage: 40 MG, QD
     Route: 048
  16. POTASSIUM CHLORIDE [Concomitant]
     Active Substance: POTASSIUM CHLORIDE
     Dosage: 1 DF, QD
     Route: 048
  17. CALCIUM CARBONATE\CHOLECALCIFEROL [Concomitant]
     Active Substance: CALCIUM CARBONATE\CHOLECALCIFEROL
     Dosage: 1 DF, QD
     Route: 048
  18. ZOPICLONE [Concomitant]
     Active Substance: ZOPICLONE
     Dosage: 7.5 MG, QD
     Route: 048
  19. INSULIN HUMAN [Concomitant]
     Active Substance: INSULIN HUMAN
     Route: 058

REACTIONS (1)
  - Generalised tonic-clonic seizure [Recovering/Resolving]

NARRATIVE: CASE EVENT DATE: 20040510
